FAERS Safety Report 8806006 (Version 1)
Quarter: 2012Q4

REPORT INFORMATION
  Report Type: Spontaneous
  Country: US (occurrence: None)
  Receive Date: 20120919
  Receipt Date: 20120919
  Transmission Date: 20130627
  Serious: Yes (Other)
  Sender: FDA-Public Use
  Company Number: None

PATIENT
  Sex: Male

DRUGS (1)
  1. ZAVESCA [Suspect]
     Indication: GAUCHER^S DISEASE
     Dosage: po
     Route: 048

REACTIONS (3)
  - Flatulence [None]
  - Diarrhoea [None]
  - Abnormal dreams [None]
